FAERS Safety Report 9877371 (Version 1)
Quarter: 2014Q1

REPORT INFORMATION
  Report Type: Report from Study
  Country: CA (occurrence: CA)
  Receive Date: 20140206
  Receipt Date: 20140206
  Transmission Date: 20141002
  Serious: Yes (Death)
  Sender: FDA-Public Use
  Company Number: CA-MPIJNJ-2014JNJ000257

PATIENT
  Sex: 0

DRUGS (1)
  1. VELCADE [Suspect]
     Indication: AMYLOIDOSIS
     Dosage: 1.3 UNK, UNK

REACTIONS (2)
  - Death [Fatal]
  - Off label use [Unknown]
